FAERS Safety Report 7320460-6 (Version None)
Quarter: 2011Q1

REPORT INFORMATION
  Report Type: 
  Country: None (occurrence: None)
  Receive Date: 20110228
  Receipt Date: 20110217
  Transmission Date: 20110831
  Serious: Yes (Other)
  Sender: FDA-Public Use
  Company Number: B0700966A

PATIENT
  Age: 43 Year
  Sex: Female

DRUGS (3)
  1. FLOLAN [Suspect]
     Indication: PULMONARY HYPERTENSION
     Route: 042
  2. FLOLAN [Suspect]
     Route: 042
  3. BOSENTAN [Concomitant]
     Route: 048

REACTIONS (6)
  - FATIGUE [None]
  - PLEURAL EFFUSION [None]
  - WEIGHT DECREASED [None]
  - ISOLATED ADRENOCORTICOTROPIC HORMONE DEFICIENCY [None]
  - GENERALISED OEDEMA [None]
  - DECREASED APPETITE [None]
